FAERS Safety Report 24017353 (Version 5)
Quarter: 2025Q2

REPORT INFORMATION
  Report Type: Spontaneous
  Country: US (occurrence: US)
  Receive Date: 20240627
  Receipt Date: 20250507
  Transmission Date: 20250717
  Serious: No
  Sender: BIOGEN
  Company Number: US-BIOGEN-2024BI01270527

PATIENT
  Age: 24 Year
  Sex: Female

DRUGS (1)
  1. TYSABRI [Suspect]
     Active Substance: NATALIZUMAB
     Indication: Multiple sclerosis
     Dosage: START DATE ALSO REPORTED AS 21-FEB-2022?INFUSED OVER 1 HOUR
     Route: 050
     Dates: start: 202201

REACTIONS (6)
  - Hypoaesthesia [Unknown]
  - Photophobia [Unknown]
  - Memory impairment [Unknown]
  - Speech disorder [Unknown]
  - Multiple sclerosis [Unknown]
  - Fatigue [Unknown]

NARRATIVE: CASE EVENT DATE: 20240618
